FAERS Safety Report 8458749-X (Version None)
Quarter: 2012Q2

REPORT INFORMATION
  Report Type: 
  Country: None (occurrence: None)
  Receive Date: 20120618
  Receipt Date: 20120529
  Transmission Date: 20120825
  Serious: Yes (Hospitalization, Other)
  Sender: FDA-Public Use
  Company Number: 2012P1035484

PATIENT
  Age: 60 Year
  Sex: Female

DRUGS (1)
  1. PREDNISOLONE [Suspect]
     Indication: CROHN'S DISEASE
     Dosage: 20 MG;QD;

REACTIONS (8)
  - BLOOD UREA INCREASED [None]
  - CYTOMEGALOVIRUS COLITIS [None]
  - STRONGYLOIDIASIS [None]
  - ASCITES [None]
  - HEART RATE INCREASED [None]
  - LYMPHADENOPATHY [None]
  - BLOOD ALBUMIN DECREASED [None]
  - WHEEZING [None]
